FAERS Safety Report 5277351-4 (Version None)
Quarter: 2007Q1

REPORT INFORMATION
  Report Type: 
  Country: None (occurrence: None)
  Receive Date: 20061213
  Receipt Date: 20050815
  Transmission Date: 20070707
  Serious: Yes (Disabling)
  Sender: FDA-Public Use
  Company Number: 2005AC01228

PATIENT
  Age: 43 Year
  Sex: Female

DRUGS (9)
  1. QUETIAPINE FUMARATE [Suspect]
     Indication: INSOMNIA
     Dosage: 25 MG DAILY PO
     Route: 048
  2. QUETIAPINE FUMARATE [Suspect]
     Indication: INSOMNIA
     Dosage: 50 MG DAILY PO
     Route: 048
  3. VENLAFAXINE HCL [Concomitant]
  4. LORAZEPAM [Concomitant]
  5. DIPHENHYDRAMINE HCL [Concomitant]
  6. METHADONE HCL [Concomitant]
  7. HYDROXYZINE [Concomitant]
  8. ACETAMINOPHEN [Concomitant]
  9. TIAGABINE HCL [Concomitant]

REACTIONS (1)
  - AKATHISIA [None]
